FAERS Safety Report 6669396-4 (Version None)
Quarter: 2010Q2

REPORT INFORMATION
  Report Type: 
  Country: None (occurrence: None)
  Receive Date: 20100406
  Receipt Date: 20100330
  Transmission Date: 20101027
  Serious: Yes (Hospitalization)
  Sender: FDA-Public Use
  Company Number: B0645444A

PATIENT
  Age: 65 Year
  Sex: Female

DRUGS (11)
  1. PAROXETINE HCL [Suspect]
     Indication: DRUG USE FOR UNKNOWN INDICATION
     Dosage: 1UNIT PER DAY
     Route: 048
  2. ASPIRIN [Suspect]
     Indication: DRUG USE FOR UNKNOWN INDICATION
     Dosage: 300MG PER DAY
     Route: 048
     Dates: end: 20100301
  3. CORDARONE [Concomitant]
  4. BELOC ZOK [Concomitant]
  5. TRIATEC [Concomitant]
  6. ZANIDIP [Concomitant]
  7. TORSEMIDE [Concomitant]
  8. LESCOL [Concomitant]
  9. GLUCOPHAGE [Concomitant]
  10. NOVONORM [Concomitant]
  11. LEVOTHYROXINE SODIUM [Concomitant]

REACTIONS (2)
  - ANAEMIA [None]
  - GASTRITIS EROSIVE [None]
